FAERS Safety Report 15821514 (Version 1)
Quarter: 2019Q1

REPORT INFORMATION
  Report Type: Spontaneous
  Country: MX (occurrence: MX)
  Receive Date: 20190114
  Receipt Date: 20190114
  Transmission Date: 20190417
  Serious: Yes (Other)
  Sender: FDA-Public Use
  Company Number: MX-PFIZER INC-2019015486

PATIENT
  Sex: Male

DRUGS (1)
  1. REVATHIO [Suspect]
     Active Substance: SILDENAFIL CITRATE
     Indication: PULMONARY HYPERTENSION
     Dosage: 20 MG, 3X/DAY (EVERY 8 HOURS)

REACTIONS (1)
  - Retinal neovascularisation [Unknown]

NARRATIVE: CASE EVENT DATE: 201807
